FAERS Safety Report 20382577 (Version 1)
Quarter: 2022Q1

REPORT INFORMATION
  Report Type: Spontaneous
  Country: US (occurrence: US)
  Receive Date: 20220127
  Receipt Date: 20220127
  Transmission Date: 20220423
  Serious: Yes (Other)
  Sender: FDA-Public Use
  Company Number: US-PIRAMAL PHARMA LIMITED-2021-PEL-000784

PATIENT

DRUGS (1)
  1. GABLOFEN [Suspect]
     Active Substance: BACLOFEN
     Indication: Muscle spasticity
     Dosage: 143 MICROGRAM PER DAY
     Route: 037

REACTIONS (5)
  - Device dislocation [Recovered/Resolved]
  - Device inversion [Recovered/Resolved]
  - Drug ineffective [Unknown]
  - Device issue [Unknown]
  - Device breakage [Unknown]
